FAERS Safety Report 7358946-0 (Version None)
Quarter: 2011Q1

REPORT INFORMATION
  Report Type: 
  Country: None (occurrence: None)
  Receive Date: 20110317
  Receipt Date: 20110310
  Transmission Date: 20110831
  Serious: Yes (Hospitalization)
  Sender: FDA-Public Use
  Company Number: US-ELI_LILLY_AND_COMPANY-US201103003561

PATIENT
  Sex: Female

DRUGS (1)
  1. CYMBALTA [Suspect]
     Dosage: UNK, UNKNOWN

REACTIONS (6)
  - DRUG DISPENSING ERROR [None]
  - OVERDOSE [None]
  - URINARY RETENTION [None]
  - HEPATIC ENZYME INCREASED [None]
  - VOMITING [None]
  - MALAISE [None]
